FAERS Safety Report 9382210 (Version 1)
Quarter: 2013Q3

REPORT INFORMATION
  Report Type: Spontaneous
  Country: US (occurrence: US)
  Receive Date: 20130703
  Receipt Date: 20130703
  Transmission Date: 20140515
  Serious: No
  Sender: FDA-Public Use
  Company Number: US-UPSHER-SMITH LABORATORIES, INC.-12001024

PATIENT
  Sex: 0

DRUGS (3)
  1. DIVIGEL [Suspect]
     Indication: HOT FLUSH
     Dosage: 1 MG, QD
     Route: 061
     Dates: start: 201109, end: 201205
  2. PROZAC /00724401/ [Suspect]
     Indication: MENOPAUSE
     Dosage: UNK, UNK
     Route: 048
     Dates: start: 201109
  3. PROGESTIN [Concomitant]
     Dosage: UNK

REACTIONS (1)
  - Weight increased [Not Recovered/Not Resolved]
